FAERS Safety Report 24301833 (Version 1)
Quarter: 2024Q3

REPORT INFORMATION
  Report Type: Report from Study
  Country: US (occurrence: US)
  Receive Date: 20240910
  Receipt Date: 20240910
  Transmission Date: 20241016
  Serious: Yes (Hospitalization)
  Sender: MYLAN
  Company Number: US-MYLANLABS-2024M1081909

PATIENT
  Sex: Male

DRUGS (20)
  1. MAGNESIUM [Suspect]
     Active Substance: MAGNESIUM
     Indication: Mineral supplementation
     Dosage: UNK
     Route: 065
  2. IRON [Suspect]
     Active Substance: IRON
     Indication: Mineral supplementation
     Dosage: UNK
     Route: 065
  3. IRON [Suspect]
     Active Substance: IRON
     Indication: Performance enhancing product use
  4. VITAMINS [Suspect]
     Active Substance: VITAMINS
     Indication: Mineral supplementation
     Dosage: UNK
     Route: 065
  5. VITAMINS [Suspect]
     Active Substance: VITAMINS
     Indication: Performance enhancing product use
  6. VITAMINS [Suspect]
     Active Substance: VITAMINS
     Indication: Vitamin supplementation
  7. GINKGO [Suspect]
     Active Substance: GINKGO
     Indication: Supplementation therapy
     Dosage: UNK
     Route: 065
  8. GINKGO [Suspect]
     Active Substance: GINKGO
     Indication: Performance enhancing product use
  9. ZINC [Suspect]
     Active Substance: ZINC
     Indication: Mineral supplementation
     Dosage: UNK
     Route: 065
  10. ZINC [Suspect]
     Active Substance: ZINC
     Indication: Performance enhancing product use
  11. HERBALS\TURMERIC [Suspect]
     Active Substance: HERBALS\TURMERIC
     Indication: Supplementation therapy
     Dosage: UNK
     Route: 065
  12. HERBALS\TURMERIC [Suspect]
     Active Substance: HERBALS\TURMERIC
     Indication: Performance enhancing product use
  13. GARLIC [Suspect]
     Active Substance: GARLIC
     Indication: Supplementation therapy
     Dosage: UNK
     Route: 065
  14. GARLIC [Suspect]
     Active Substance: GARLIC
     Indication: Performance enhancing product use
  15. CHONDROITIN SULFATE A\GLUCOSAMINE [Suspect]
     Active Substance: CHONDROITIN SULFATE A\GLUCOSAMINE
     Indication: Supplementation therapy
     Dosage: UNK
     Route: 065
  16. CHONDROITIN SULFATE A\GLUCOSAMINE [Suspect]
     Active Substance: CHONDROITIN SULFATE A\GLUCOSAMINE
     Indication: Performance enhancing product use
  17. FISH OIL [Suspect]
     Active Substance: FISH OIL
     Indication: Supplementation therapy
     Dosage: UNK
     Route: 065
  18. FISH OIL [Suspect]
     Active Substance: FISH OIL
     Indication: Performance enhancing product use
  19. CALCIUM CITRATE [Suspect]
     Active Substance: CALCIUM CITRATE
     Indication: Mineral supplementation
     Dosage: UNK
     Route: 065
  20. CALCIUM CITRATE [Suspect]
     Active Substance: CALCIUM CITRATE
     Indication: Performance enhancing product use

REACTIONS (2)
  - Drug-induced liver injury [Recovered/Resolved]
  - Drug abuse [Recovered/Resolved]
